FAERS Safety Report 21928387 (Version 3)
Quarter: 2023Q4

REPORT INFORMATION
  Report Type: Spontaneous
  Country: JP (occurrence: JP)
  Receive Date: 20230130
  Receipt Date: 20231102
  Transmission Date: 20240110
  Serious: Yes (Other)
  Sender: FDA-Public Use
  Company Number: JP-KYOWAKIRIN-2020AKK013727

PATIENT
  Age: 38 Year
  Sex: Male

DRUGS (18)
  1. ROMIPLOSTIM [Suspect]
     Active Substance: ROMIPLOSTIM
     Indication: Platelet count decreased
     Dosage: 10 MICROGRAM/KILOGRAM
     Route: 058
     Dates: start: 20200819
  2. CYCLOPHOSPHAMIDE [Suspect]
     Active Substance: CYCLOPHOSPHAMIDE
     Indication: Preoperative care
     Dosage: UNK
     Route: 065
     Dates: start: 20200815, end: 20200816
  3. FILGRASTIM [Concomitant]
     Active Substance: FILGRASTIM
     Indication: Neutrophil count abnormal
     Dosage: 600 MICROGRAM, QD
     Route: 041
     Dates: start: 20200823, end: 20200910
  4. FILGRASTIM [Concomitant]
     Active Substance: FILGRASTIM
     Dosage: UNK, QOD
     Route: 041
     Dates: start: 20200911, end: 202009
  5. MYCOPHENOLATE MOFETIL [Concomitant]
     Active Substance: MYCOPHENOLATE MOFETIL
     Indication: Prophylaxis against graft versus host disease
     Dosage: 1000 MILLIGRAM, BID
     Route: 048
     Dates: start: 20200817
  6. CYCLOSPORINE [Concomitant]
     Active Substance: CYCLOSPORINE
     Indication: Prophylaxis against graft versus host disease
     Dosage: 230 TO 250 MG/DAY
     Route: 041
     Dates: start: 20200817
  7. LEVOFLOXACIN HEMIHYDRATE [Concomitant]
     Active Substance: LEVOFLOXACIN
     Indication: Infection prophylaxis
     Dosage: 500 MILLIGRAM, QD
     Route: 048
     Dates: start: 20200811
  8. ACYCLOVIR [Concomitant]
     Active Substance: ACYCLOVIR
     Indication: Antiviral prophylaxis
     Dosage: 100 MILLIGRAM, TID
     Route: 048
     Dates: start: 20200811
  9. URSODIOL [Concomitant]
     Active Substance: URSODIOL
     Indication: Hepatobiliary disorder prophylaxis
     Dosage: 200 TO 300 MG, TID
     Route: 048
     Dates: start: 20200811
  10. NEXIUM [Concomitant]
     Active Substance: ESOMEPRAZOLE MAGNESIUM
     Indication: Gastritis prophylaxis
     Dosage: 20 MILLIGRAM, QD
     Route: 048
     Dates: start: 20200808
  11. MICAFUNGIN SODIUM [Concomitant]
     Active Substance: MICAFUNGIN SODIUM
     Indication: Infection prophylaxis
     Dosage: 50 MILLIGRAM, QD
     Route: 042
     Dates: start: 20200811, end: 20200826
  12. MICAFUNGIN SODIUM [Concomitant]
     Active Substance: MICAFUNGIN SODIUM
     Dosage: 150 MILLIGRAM
     Route: 041
     Dates: start: 20200827
  13. Azunol [Concomitant]
     Indication: Proctalgia
     Dosage: UNK, PRN
     Route: 061
     Dates: start: 20200816
  14. SODIUM GUALENATE MONOHYDRATE [Concomitant]
     Active Substance: SODIUM GUALENATE MONOHYDRATE
     Indication: Prophylaxis
     Dosage: UNK, PRN
     Route: 049
     Dates: start: 20200807
  15. NADIFLOXACIN [Concomitant]
     Active Substance: NADIFLOXACIN
     Indication: Acne
     Dosage: UNK, PRN
     Route: 061
     Dates: start: 20200818
  16. KCL [Concomitant]
     Active Substance: POTASSIUM CHLORIDE
     Indication: Prophylaxis
     Dosage: 20 MILLIEQUIVALENT, QD
     Route: 041
     Dates: start: 20200820
  17. LOPERAMIDE HYDROCHLORIDE [Concomitant]
     Active Substance: LOPERAMIDE HYDROCHLORIDE
     Indication: Diarrhoea
     Dosage: 1 MILLIGRAM, PRN
     Route: 048
     Dates: start: 20200816
  18. Posterisan forte [Concomitant]
     Indication: Proctalgia
     Dosage: UNK, PRN
     Route: 061
     Dates: start: 20200822

REACTIONS (1)
  - Febrile neutropenia [Recovered/Resolved]

NARRATIVE: CASE EVENT DATE: 20200823
